FAERS Safety Report 9026155 (Version 2)
Quarter: 2013Q1

REPORT INFORMATION
  Report Type: Spontaneous
  Country: US (occurrence: None)
  Receive Date: 20130107
  Receipt Date: 20130116
  Transmission Date: 20140127
  Serious: Yes (Other)
  Sender: FDA-Public Use
  Company Number: 2012P1067412

PATIENT
  Age: 77 Year
  Sex: Female
  Weight: 68.04 kg

DRUGS (5)
  1. AZO STANDARD [Suspect]
     Indication: URINARY TRACT INFECTION
     Dosage: 2 TABLETS
     Route: 048
     Dates: start: 20121212, end: 20121212
  2. ENALAPRIL [Concomitant]
  3. ASPIRIN [Concomitant]
  4. DIGOXIN [Concomitant]
  5. VERAPAMIL [Concomitant]

REACTIONS (4)
  - Incorrect dose administered [None]
  - Inappropriate schedule of drug administration [None]
  - Dyspnoea [None]
  - Feeling cold [None]
